FAERS Safety Report 7115105-4 (Version None)
Quarter: 2010Q4

REPORT INFORMATION
  Report Type: 
  Country: None (occurrence: None)
  Receive Date: 20101122
  Receipt Date: 20101115
  Transmission Date: 20110411
  Serious: Yes (Death, Hospitalization)
  Sender: FDA-Public Use
  Company Number: US-CELGENEUS-163-21880-10082595

PATIENT
  Sex: Male

DRUGS (4)
  1. REVLIMID [Suspect]
     Indication: MULTIPLE MYELOMA
     Route: 048
     Dates: start: 20091201
  2. REVLIMID [Suspect]
     Route: 048
     Dates: start: 20100701, end: 20100818
  3. VINCRISTINE [Concomitant]
     Indication: MULTIPLE MYELOMA
     Route: 065
     Dates: start: 20100121
  4. DOXIL [Concomitant]
     Indication: MULTIPLE MYELOMA
     Route: 065
     Dates: start: 20100121

REACTIONS (4)
  - DEHYDRATION [None]
  - METABOLIC ACIDOSIS [None]
  - RENAL FAILURE [None]
  - WEIGHT DECREASED [None]
